FAERS Safety Report 7287357-1 (Version None)
Quarter: 2011Q1

REPORT INFORMATION
  Report Type: 
  Country: None (occurrence: None)
  Receive Date: 20110211
  Receipt Date: 20110203
  Transmission Date: 20110831
  Serious: Yes (Hospitalization)
  Sender: FDA-Public Use
  Company Number: US-JNJFOC-20110201393

PATIENT
  Age: 23 Year
  Sex: Female
  Weight: 58.6 kg

DRUGS (6)
  1. LEVETIRACETAM [Concomitant]
  2. ACETAMINOPHEN [Suspect]
     Indication: BACK PAIN
     Route: 048
  3. LITHIUM [Concomitant]
  4. QUETIAPINE [Concomitant]
  5. ACETAMINOPHEN [Suspect]
     Dosage: 40-50 TABLETS ON 24JAN2011
     Route: 048
  6. ADDERALL 10 [Concomitant]

REACTIONS (5)
  - METABOLIC ACIDOSIS [None]
  - LIVER INJURY [None]
  - INTENTIONAL OVERDOSE [None]
  - NAUSEA [None]
  - DECREASED APPETITE [None]
